FAERS Safety Report 6417482-6 (Version None)
Quarter: 2009Q4

REPORT INFORMATION
  Report Type: 
  Country: None (occurrence: None)
  Receive Date: 20091026
  Receipt Date: 20091013
  Transmission Date: 20100525
  Serious: Yes (Hospitalization, Other)
  Sender: FDA-Public Use
  Company Number: ADR38022009

PATIENT
  Age: 66 Year
  Sex: Male

DRUGS (7)
  1. SIMVASTATIN [Suspect]
     Indication: HYPERCHOLESTEROLAEMIA
     Dosage: 20 MG, ORAL USE
     Route: 048
     Dates: start: 20010201, end: 20021230
  2. CYPROTERONE ACETATE [Concomitant]
  3. ALLOPURINOL [Concomitant]
  4. AMLODIPINE BESYLATE [Concomitant]
  5. ASPIRIN [Concomitant]
  6. CANDESARTAN CILEXETIL [Concomitant]
  7. OMEPRAZOLE [Concomitant]

REACTIONS (5)
  - ABASIA [None]
  - ASTHENIA [None]
  - DEEP VEIN THROMBOSIS [None]
  - DRUG INTERACTION [None]
  - RHABDOMYOLYSIS [None]
